FAERS Safety Report 9515320 (Version 2)
Quarter: 2013Q4

REPORT INFORMATION
  Report Type: Report from Study
  Country: FR (occurrence: FR)
  Receive Date: 20130911
  Receipt Date: 20131028
  Transmission Date: 20140711
  Serious: Yes (Hospitalization)
  Sender: FDA-Public Use
  Company Number: FR-AMGEN-FRACT2013063027

PATIENT
  Age: 59 Year
  Sex: Male
  Weight: 70 kg

DRUGS (9)
  1. PANITUMUMAB [Suspect]
     Indication: TRANSITIONAL CELL CARCINOMA
     Dosage: 460 MG, UNK
     Route: 042
     Dates: start: 20130703
  2. METHOTREXATE [Concomitant]
     Indication: TRANSITIONAL CELL CARCINOMA
     Dosage: 27.5 MG, UNK
     Route: 042
     Dates: start: 20130702
  3. VINBLASTINE [Concomitant]
     Indication: TRANSITIONAL CELL CARCINOMA
     Dosage: 56 MG, UNK
     Route: 042
     Dates: start: 20130703
  4. DOXORUBICIN [Concomitant]
     Indication: TRANSITIONAL CELL CARCINOMA
     Dosage: 60 MG, UNK
     Route: 042
     Dates: start: 20130703
  5. CISPLATINE [Concomitant]
     Indication: TRANSITIONAL CELL CARCINOMA
     Dosage: 132 MG, UNK
     Route: 042
     Dates: start: 20130703
  6. OXYCONTIN [Concomitant]
     Dosage: 10 MG, BID
     Dates: start: 20130619
  7. PAROXETINE [Concomitant]
     Dosage: 20 MG, QD
     Dates: start: 201303
  8. OXYNORM [Concomitant]
     Dosage: 3 MG, BID
     Dates: start: 20130618
  9. FORLAX                             /00754501/ [Concomitant]
     Dosage: UNK
     Dates: start: 20130725

REACTIONS (3)
  - Candida infection [Recovered/Resolved]
  - Odynophagia [Recovered/Resolved]
  - Stomatitis [Recovered/Resolved]
